FAERS Safety Report 6742012-9 (Version None)
Quarter: 2010Q2

REPORT INFORMATION
  Report Type: 
  Country: None (occurrence: None)
  Receive Date: 20100520
  Receipt Date: 20091013
  Transmission Date: 20101027
  Serious: Yes (Other)
  Sender: FDA-Public Use
  Company Number: 2006152306

PATIENT
  Age: 26 Year
  Sex: Female
  Weight: 50 kg

DRUGS (5)
  1. DEPO-PROVERA [Suspect]
     Dosage: INTRAMUSCULAR
     Route: 030
     Dates: start: 20010520, end: 20050202
  2. PERCOCET [Concomitant]
  3. SOMA [Concomitant]
  4. DARVOCET [Concomitant]
  5. SONATA [Concomitant]

REACTIONS (1)
  - OSTEOPOROSIS [None]
